FAERS Safety Report 21644833 (Version 2)
Quarter: 2022Q4

REPORT INFORMATION
  Report Type: Report from Study
  Country: CN (occurrence: CN)
  Receive Date: 20221125
  Receipt Date: 20221130
  Transmission Date: 20230113
  Serious: Yes (Death)
  Sender: FDA-Public Use
  Company Number: CN-009507513-2211CHN006613

PATIENT
  Age: 56 Year
  Sex: Female

DRUGS (4)
  1. TUCATINIB [Suspect]
     Active Substance: TUCATINIB
     Indication: Breast cancer
     Dosage: UNK
     Route: 065
  2. TUCATINIB [Suspect]
     Active Substance: TUCATINIB
     Indication: Adenocarcinoma gastric
  3. TUCATINIB [Suspect]
     Active Substance: TUCATINIB
     Indication: Colorectal cancer
  4. TUCATINIB [Suspect]
     Active Substance: TUCATINIB
     Indication: Oesophageal adenocarcinoma

REACTIONS (1)
  - Fall [Fatal]

NARRATIVE: CASE EVENT DATE: 20221118
